FAERS Safety Report 4543047-7 (Version None)
Quarter: 2004Q4

REPORT INFORMATION
  Report Type: 
  Country: None (occurrence: None)
  Receive Date: 20041229
  Receipt Date: 20041220
  Transmission Date: 20050328
  Serious: Yes (Death, Hospitalization)
  Sender: FDA-Public Use
  Company Number: 2004-BP-12289BP

PATIENT
  Age: 34 Year
  Sex: Male

DRUGS (7)
  1. VIRAMUNE [Suspect]
     Indication: HIV INFECTION
     Dosage: PO
     Route: 048
     Dates: start: 20040923, end: 20041017
  2. VIRAMUNE [Suspect]
     Indication: HIV INFECTION
     Dosage: PO
     Route: 048
     Dates: start: 20040923
  3. STAVUDINE (STAVUDINE) [Suspect]
     Indication: HIV INFECTION
     Dosage: 30 MILLIGRAM, PO
     Route: 048
     Dates: start: 20040923, end: 20041017
  4. STAVUDINE (STAVUDINE) [Suspect]
     Indication: HIV INFECTION
     Dosage: 30 MILLIGRAM, PO
     Route: 048
     Dates: start: 20040923
  5. BACTRIM [Concomitant]
  6. EFAVUDINE [Suspect]
     Indication: HIV INFECTION
     Dosage: 600 MILLIGRAM 1 DAY (NR)
     Dates: start: 20040923
  7. LAMIVUDINE(LAMIVUDINE) [Suspect]
     Indication: HIV INFECTION
     Dosage: 150 MILLIGRAM 2/1 DAY PO
     Route: 048
     Dates: start: 20040923, end: 20041017

REACTIONS (5)
  - DIARRHOEA [None]
  - HEPATITIS B [None]
  - HEPATOTOXICITY [None]
  - ORAL CANDIDIASIS [None]
  - PULMONARY TUBERCULOSIS [None]
